FAERS Safety Report 10686913 (Version 3)
Quarter: 2016Q1

REPORT INFORMATION
  Report Type: Report from Study
  Country: ES (occurrence: ES)
  Receive Date: 20150102
  Receipt Date: 20160209
  Transmission Date: 20160525
  Serious: Yes (Hospitalization)
  Sender: FDA-Public Use
  Company Number: ES-AMGEN-ESPCT2014101728

PATIENT
  Age: 75 Year
  Sex: Male

DRUGS (2)
  1. PANITUMUMAB [Suspect]
     Active Substance: PANITUMUMAB
     Indication: HEAD AND NECK CANCER
     Dosage: 434 UNK, Q2WK
     Route: 042
     Dates: start: 20140815, end: 20150105
  2. PACLITAXEL. [Concomitant]
     Active Substance: PACLITAXEL
     Dosage: 144 UNK, QWK
     Route: 042
     Dates: start: 20140815, end: 20141003

REACTIONS (1)
  - Odynophagia [Recovered/Resolved]

NARRATIVE: CASE EVENT DATE: 20141222
